FAERS Safety Report 12705823 (Version 1)
Quarter: 2016Q3

REPORT INFORMATION
  Report Type: Spontaneous
  Country: US (occurrence: None)
  Receive Date: 20160831
  Receipt Date: 20160831
  Transmission Date: 20161109
  Serious: Yes (Life-Threatening, Hospitalization)
  Sender: FDA-Public Use
  Company Number: None

PATIENT
  Age: 74 Year
  Sex: Female
  Weight: 65.32 kg

DRUGS (5)
  1. MULTAQ [Suspect]
     Active Substance: DRONEDARONE
     Indication: PALPITATIONS
     Route: 048
     Dates: start: 20151204, end: 20151227
  2. MULTAQ [Suspect]
     Active Substance: DRONEDARONE
     Indication: SUPRAVENTRICULAR EXTRASYSTOLES
     Route: 048
     Dates: start: 20151204, end: 20151227
  3. LIPITOR [Concomitant]
     Active Substance: ATORVASTATIN CALCIUM
  4. DILTIAZEM. [Concomitant]
     Active Substance: DILTIAZEM
  5. EPIE PEN [Concomitant]

REACTIONS (8)
  - Tubulointerstitial nephritis [None]
  - Acute kidney injury [None]
  - Hypokalaemia [None]
  - Thrombocytosis [None]
  - Dehydration [None]
  - Weight decreased [None]
  - Hyponatraemia [None]
  - Leukocytosis [None]

NARRATIVE: CASE EVENT DATE: 20151207
